FAERS Safety Report 12886738 (Version 2)
Quarter: 2016Q4

REPORT INFORMATION
  Report Type: Other
  Country: GB (occurrence: GB)
  Receive Date: 20161026
  Receipt Date: 20161101
  Transmission Date: 20170207
  Serious: Yes (Life-Threatening, Hospitalization)
  Sender: FDA-Public Use
  Company Number: GB-PERRIGO-16GB021038

PATIENT

DRUGS (1)
  1. IBUPROFEN. [Suspect]
     Active Substance: IBUPROFEN
     Indication: ANALGESIC THERAPY
     Route: 048
     Dates: start: 20160924, end: 20160924

REACTIONS (2)
  - Pharyngeal ulceration [Unknown]
  - Chemical burn of respiratory tract [Unknown]

NARRATIVE: CASE EVENT DATE: 20160924
